FAERS Safety Report 20979337 (Version 1)
Quarter: 2022Q2

REPORT INFORMATION
  Report Type: Spontaneous
  Country: IN (occurrence: IN)
  Receive Date: 20220620
  Receipt Date: 20220620
  Transmission Date: 20220720
  Serious: Yes (Other)
  Sender: FDA-Public Use
  Company Number: IN-NOVAST LABORATORIES INC.-2022NOV000270

PATIENT
  Age: 4 Year
  Sex: Female

DRUGS (4)
  1. CARBOPLATIN [Suspect]
     Active Substance: CARBOPLATIN
     Indication: Nephroblastoma
     Dosage: 600 MILLIGRAM/SQ. METER AT WEEKS 4 AND 10
     Route: 065
     Dates: start: 20200323
  2. CARBOPLATIN [Suspect]
     Active Substance: CARBOPLATIN
     Indication: Metastases to lung
     Dosage: 1200 MILLIGRAM/SQ. METER CUMMULATIVE DOSE AT WEEKS 4 AND 10
     Route: 065
     Dates: start: 20200323
  3. ETOPOSIDE [Concomitant]
     Active Substance: ETOPOSIDE
     Indication: Nephroblastoma
     Dosage: UNK
     Route: 065
     Dates: start: 20200323
  4. ETOPOSIDE [Concomitant]
     Active Substance: ETOPOSIDE
     Indication: Metastases to lung

REACTIONS (7)
  - Fanconi syndrome [Recovered/Resolved]
  - Sepsis [Recovered/Resolved]
  - Diarrhoea [Recovered/Resolved]
  - Dehydration [Recovered/Resolved]
  - Pancytopenia [Unknown]
  - Febrile neutropenia [Unknown]
  - Product use in unapproved indication [Unknown]

NARRATIVE: CASE EVENT DATE: 20200601
